FAERS Safety Report 8310685-5 (Version None)
Quarter: 2012Q2

REPORT INFORMATION
  Report Type: 
  Country: None (occurrence: None)
  Receive Date: 20120425
  Receipt Date: 20120417
  Transmission Date: 20120825
  Serious: Yes (Death, Other)
  Sender: FDA-Public Use
  Company Number: JP-CELGENEUS-087-50794-12011899

PATIENT
  Age: 85 Year
  Sex: Female
  Weight: 43 kg

DRUGS (8)
  1. DIGOXIN [Concomitant]
     Route: 065
     Dates: start: 20110101
  2. VERAPAMIL HCL [Concomitant]
     Route: 065
     Dates: start: 20110101
  3. DIOVAN [Concomitant]
     Route: 065
     Dates: start: 20110101
  4. VIDAZA [Suspect]
     Dosage: 75 MILLIGRAM/SQ. METER
     Route: 041
     Dates: start: 20111219, end: 20111225
  5. RABEPRAZOLE SODIUM [Concomitant]
     Route: 065
     Dates: start: 20110101
  6. OMEPRAZOLE [Concomitant]
     Route: 065
     Dates: start: 20110101
  7. TRANSFUSION [Concomitant]
     Route: 041
  8. PREDNISOLONE [Concomitant]
     Route: 065
     Dates: start: 20110101

REACTIONS (5)
  - ABDOMINAL PAIN [None]
  - SHOCK [None]
  - DECREASED APPETITE [None]
  - OLIGURIA [None]
  - ABDOMINAL DISCOMFORT [None]
